FAERS Safety Report 18460776 (Version 1)
Quarter: 2020Q4

REPORT INFORMATION
  Report Type: Spontaneous
  Country: SK (occurrence: SK)
  Receive Date: 20201104
  Receipt Date: 20201104
  Transmission Date: 20210114
  Serious: Yes (Hospitalization, Other)
  Sender: FDA-Public Use
  Company Number: SK-TEVA-2020-SK-1844152

PATIENT
  Age: 86 Year
  Sex: Female

DRUGS (1)
  1. INDAPAMID RATIOPHARM [Suspect]
     Active Substance: INDAPAMIDE
     Route: 065

REACTIONS (3)
  - Hyponatraemia [Recovered/Resolved]
  - Dizziness [Unknown]
  - Syncope [Unknown]

NARRATIVE: CASE EVENT DATE: 20200906
